FAERS Safety Report 16110822 (Version 1)
Quarter: 2019Q1

REPORT INFORMATION
  Report Type: Spontaneous
  Country: US (occurrence: US)
  Receive Date: 20190325
  Receipt Date: 20190325
  Transmission Date: 20190418
  Serious: Yes (Hospitalization)
  Sender: FDA-Public Use
  Company Number: US-ASSERTIO THERAPEUTICS, INC.-US-2019DEP000268

PATIENT
  Sex: Female

DRUGS (2)
  1. ZIPSOR [Suspect]
     Active Substance: DICLOFENAC POTASSIUM
     Indication: MIGRAINE
     Dosage: 25 MG, AS NEEDED UP TO FOUR TIMES DAILY
     Route: 065
  2. FIORICET [Concomitant]
     Active Substance: ACETAMINOPHEN\BUTALBITAL\CAFFEINE
     Indication: MIGRAINE
     Dosage: AS NEEDED UP TO 3-4 TIMES DAILY
     Route: 065

REACTIONS (2)
  - Joint injury [Unknown]
  - Infection [Unknown]

NARRATIVE: CASE EVENT DATE: 201808
